FAERS Safety Report 9969878 (Version 1)
Quarter: 2014Q1

REPORT INFORMATION
  Report Type: Spontaneous
  Country: DE (occurrence: DE)
  Receive Date: 20140306
  Receipt Date: 20140306
  Transmission Date: 20141002
  Serious: Yes (Other)
  Sender: FDA-Public Use
  Company Number: DE-JNJFOC-20140302568

PATIENT
  Age: 40 Year
  Sex: Male
  Weight: 86 kg

DRUGS (1)
  1. XARELTO [Suspect]
     Indication: DEEP VEIN THROMBOSIS
     Route: 048

REACTIONS (7)
  - Mental disorder [Unknown]
  - Disturbance in attention [Unknown]
  - Dizziness [Unknown]
  - Pain [Unknown]
  - Myalgia [Unknown]
  - Apathy [Unknown]
  - Fatigue [Unknown]
